FAERS Safety Report 7349289-X (Version None)
Quarter: 2011Q1

REPORT INFORMATION
  Report Type: 
  Country: None (occurrence: None)
  Receive Date: 20110314
  Receipt Date: 20110228
  Transmission Date: 20110831
  Serious: Yes (Other)
  Sender: FDA-Public Use
  Company Number: BE-MYLANLABS-2011S1003952

PATIENT
  Sex: Male
  Weight: 78 kg

DRUGS (1)
  1. CLARITHROMYCIN [Suspect]
     Indication: BRONCHITIS
     Route: 048
     Dates: start: 20091014, end: 20091028

REACTIONS (5)
  - INSOMNIA [None]
  - CONFUSIONAL STATE [None]
  - PANIC ATTACK [None]
  - NIGHTMARE [None]
  - HALLUCINATION, AUDITORY [None]
